FAERS Safety Report 6031759-8 (Version None)
Quarter: 2009Q1

REPORT INFORMATION
  Report Type: 
  Country: None (occurrence: None)
  Receive Date: 20090108
  Receipt Date: 20081230
  Transmission Date: 20090719
  Serious: Yes (Disabling)
  Sender: FDA-Public Use
  Company Number: PR-MERCK-0805USA03578

PATIENT
  Age: 65 Year
  Sex: Female

DRUGS (6)
  1. FOSAMAX [Suspect]
     Route: 048
     Dates: start: 20060501, end: 20070401
  2. FOSAMAX [Suspect]
     Route: 048
     Dates: start: 19970404, end: 20000201
  3. FOSAMAX [Suspect]
     Route: 048
     Dates: start: 20000719, end: 20000801
  4. FOSAMAX [Suspect]
     Route: 048
     Dates: start: 20001129, end: 20050401
  5. FOSAMAX [Suspect]
     Route: 048
     Dates: start: 20060512
  6. FOSAMAX PLUS D [Suspect]
     Route: 048
     Dates: start: 20050824, end: 20060101

REACTIONS (7)
  - BONE DISORDER [None]
  - BONE LESION [None]
  - DRUG HYPERSENSITIVITY [None]
  - INJURY [None]
  - OSTEONECROSIS [None]
  - PULPITIS DENTAL [None]
  - TOOTH FRACTURE [None]
